FAERS Safety Report 7794621-6 (Version None)
Quarter: 2011Q4

REPORT INFORMATION
  Report Type: 
  Country: None (occurrence: None)
  Receive Date: 20111003
  Receipt Date: 20111003
  Transmission Date: 20120403
  Serious: Yes (Hospitalization)
  Sender: FDA-Public Use
  Company Number: None

PATIENT
  Age: 71 Year
  Sex: Male

DRUGS (1)
  1. NORTRIPTYLINE HCL [Suspect]
     Dosage: 150 MG EVERY DAY PO
     Route: 048
     Dates: start: 20110804

REACTIONS (4)
  - SYNCOPE [None]
  - NON-CARDIAC CHEST PAIN [None]
  - DRUG LEVEL INCREASED [None]
  - TOXICITY TO VARIOUS AGENTS [None]
